FAERS Safety Report 19604222 (Version 3)
Quarter: 2021Q3

REPORT INFORMATION
  Report Type: Spontaneous
  Country: AR (occurrence: AR)
  Receive Date: 20210723
  Receipt Date: 20210809
  Transmission Date: 20211014
  Serious: Yes (Other)
  Sender: FDA-Public Use
  Company Number: NVSC2021AR159707

PATIENT
  Sex: Male

DRUGS (7)
  1. JADENU [Suspect]
     Active Substance: DEFERASIROX
     Dosage: 2 DF, QD (STARTED 1 YEAR AGO)
     Route: 065
  2. TANVIMIL B6 [Concomitant]
     Indication: PRODUCT USED FOR UNKNOWN INDICATION
     Dosage: 100 MG, QD (FROM 8 YEARS OF AGE)
     Route: 065
  3. ACENOCOUMAROL [Concomitant]
     Active Substance: ACENOCOUMAROL
     Indication: HYPERCOAGULATION
     Dosage: 4 MG
     Route: 065
     Dates: start: 2010
  4. ACIFOL [Concomitant]
     Indication: PRODUCT USED FOR UNKNOWN INDICATION
     Dosage: 5 MG, QD (FROM 8 YEARS OF AGE)
     Route: 065
  5. JADENU [Suspect]
     Active Substance: DEFERASIROX
     Dosage: 360 MG, QD
     Route: 065
     Dates: start: 202107
  6. ASPIRINETAS [Concomitant]
     Active Substance: ASPIRIN
     Indication: PAIN
     Dosage: UNK, QD (1 TABLET)
     Route: 065
  7. JADENU [Suspect]
     Active Substance: DEFERASIROX
     Indication: CONGENITAL ANAEMIA
     Dosage: 360 MG, QD
     Route: 065
     Dates: start: 202009

REACTIONS (11)
  - Haematocrit decreased [Unknown]
  - Serum ferritin increased [Unknown]
  - Fatigue [Unknown]
  - Feeling abnormal [Unknown]
  - Haemoglobin decreased [Unknown]
  - Hepatitis [Unknown]
  - Malaise [Unknown]
  - Platelet count abnormal [Unknown]
  - Product use in unapproved indication [Unknown]
  - Incorrect dose administered [Unknown]
  - Eating disorder [Unknown]

NARRATIVE: CASE EVENT DATE: 202103
